FAERS Safety Report 24731022 (Version 1)
Quarter: 2024Q4

REPORT INFORMATION
  Report Type: Spontaneous
  Country: US (occurrence: None)
  Receive Date: 20241212
  Receipt Date: 20241212
  Transmission Date: 20250114
  Serious: Yes (Other)
  Sender: Public
  Company Number: None

PATIENT
  Age: 54 Year
  Sex: Female

DRUGS (1)
  1. CAPECITABINE [Suspect]
     Active Substance: CAPECITABINE
     Dates: start: 20241106, end: 20241212

REACTIONS (3)
  - Diarrhoea [None]
  - Fatigue [None]
  - Toxicity to various agents [None]

NARRATIVE: CASE EVENT DATE: 20241212
